FAERS Safety Report 11837321 (Version 1)
Quarter: 2015Q4

REPORT INFORMATION
  Report Type: Report from Study
  Country: US (occurrence: US)
  Receive Date: 20151215
  Receipt Date: 20151215
  Transmission Date: 20160305
  Serious: No
  Sender: FDA-Public Use
  Company Number: US-CELGENEUS-USA-2015111674

PATIENT
  Sex: Female

DRUGS (2)
  1. DEX [Suspect]
     Active Substance: DEXAMETHASONE
     Indication: PRODUCT USED FOR UNKNOWN INDICATION
     Route: 065
  2. REVLIMID [Suspect]
     Active Substance: LENALIDOMIDE
     Indication: PRODUCT USED FOR UNKNOWN INDICATION
     Route: 048

REACTIONS (6)
  - Drug effect decreased [Unknown]
  - Feeling abnormal [Unknown]
  - Erythema [Unknown]
  - Dysgeusia [Unknown]
  - Weight increased [Unknown]
  - Depression [Unknown]
